FAERS Safety Report 13384481 (Version 1)
Quarter: 2017Q1

REPORT INFORMATION
  Report Type: Spontaneous
  Country: US (occurrence: US)
  Receive Date: 20170329
  Receipt Date: 20170329
  Transmission Date: 20170429
  Serious: No
  Sender: FDA-Public Use
  Company Number: US-ALLERGAN-1658823US

PATIENT
  Sex: Female
  Weight: 56.7 kg

DRUGS (4)
  1. BLACK COHOSH [Concomitant]
     Active Substance: BLACK COHOSH
     Indication: NIGHT SWEATS
     Dosage: 80 MG, BID
     Route: 048
     Dates: start: 20160516
  2. LYRICA [Suspect]
     Active Substance: PREGABALIN
     Indication: NERVE INJURY
     Dosage: 100 MG, BID
     Route: 048
     Dates: start: 201408
  3. NORCO [Suspect]
     Active Substance: ACETAMINOPHEN\HYDROCODONE BITARTRATE
     Indication: PAIN
     Dosage: UNK
     Route: 048
     Dates: start: 201408
  4. ONE-A-DAY NOS [Concomitant]
     Active Substance: MINERALS\VITAMINS
     Dosage: UNK
     Dates: start: 2015

REACTIONS (2)
  - Dizziness [Unknown]
  - Wrong technique in product usage process [Unknown]
